FAERS Safety Report 16383821 (Version 1)
Quarter: 2019Q2

REPORT INFORMATION
  Report Type: Spontaneous
  Country: US (occurrence: US)
  Receive Date: 20190531
  Receipt Date: 20190531
  Transmission Date: 20190711
  Serious: Yes (Other)
  Sender: FDA-Public Use
  Company Number: None

PATIENT
  Age: 61 Year
  Sex: Female
  Weight: 80.55 kg

DRUGS (6)
  1. LIPITOR [Concomitant]
     Active Substance: ATORVASTATIN CALCIUM
  2. LEXAPRO [Concomitant]
     Active Substance: ESCITALOPRAM OXALATE
  3. KLONOPIN [Concomitant]
     Active Substance: CLONAZEPAM
  4. ABILIFY [Concomitant]
     Active Substance: ARIPIPRAZOLE
  5. ELAVIL [Concomitant]
     Active Substance: AMITRIPTYLINE HYDROCHLORIDE
  6. IBRANCE [Suspect]
     Active Substance: PALBOCICLIB
     Indication: BREAST CANCER FEMALE
     Route: 048
     Dates: start: 20190426

REACTIONS (4)
  - Pain in jaw [None]
  - Immune system disorder [None]
  - Therapy cessation [None]
  - Swelling face [None]

NARRATIVE: CASE EVENT DATE: 20190527
